FAERS Safety Report 6727840-8 (Version None)
Quarter: 2010Q2

REPORT INFORMATION
  Report Type: 
  Country: None (occurrence: None)
  Receive Date: 20100514
  Receipt Date: 20100514
  Transmission Date: 20101027
  Serious: Yes (Disabling)
  Sender: FDA-Public Use
  Company Number: None

PATIENT
  Age: 51 Year
  Sex: Female
  Weight: 68.0396 kg

DRUGS (1)
  1. CIPROFLOXACIN [Suspect]
     Indication: CYSTITIS
     Dosage: 500MG EVERY 12 HOURS PO
     Route: 048
     Dates: start: 20100506, end: 20100511

REACTIONS (11)
  - BACK PAIN [None]
  - CONFUSIONAL STATE [None]
  - DIARRHOEA [None]
  - DIZZINESS [None]
  - IMPAIRED DRIVING ABILITY [None]
  - INSOMNIA [None]
  - MALAISE [None]
  - MUSCULOSKELETAL PAIN [None]
  - NECK PAIN [None]
  - PAIN [None]
  - THERAPEUTIC RESPONSE UNEXPECTED [None]
